FAERS Safety Report 10518318 (Version 1)
Quarter: 2014Q4

REPORT INFORMATION
  Report Type: Spontaneous
  Country: US (occurrence: None)
  Receive Date: 20141014
  Receipt Date: 20141014
  Transmission Date: 20150528
  Serious: No
  Sender: FDA-Public Use
  Company Number: None

PATIENT
  Age: 37 Year
  Sex: Female
  Weight: 53.6 kg

DRUGS (1)
  1. ENOXAPARIN  (GENERIC) [Suspect]
     Active Substance: ENOXAPARIN
     Indication: DEEP VEIN THROMBOSIS
     Route: 058
     Dates: start: 20140826, end: 20141008

REACTIONS (2)
  - Product substitution issue [None]
  - Injection site pain [None]

NARRATIVE: CASE EVENT DATE: 20141008
